FAERS Safety Report 14422328 (Version 3)
Quarter: 2018Q4

REPORT INFORMATION
  Report Type: Spontaneous
  Country: DK (occurrence: DK)
  Receive Date: 20180123
  Receipt Date: 20181105
  Transmission Date: 20190204
  Serious: Yes (Other)
  Sender: FDA-Public Use
  Company Number: DK-SUN PHARMACEUTICAL INDUSTRIES LTD-2018R1-160205

PATIENT
  Sex: Female

DRUGS (5)
  1. LEVETIRACETAM. [Suspect]
     Active Substance: LEVETIRACETAM
     Indication: EPILEPSY
     Dosage: UNK
     Route: 065
  2. LACOSAMIDE. [Suspect]
     Active Substance: LACOSAMIDE
     Indication: GENERALISED TONIC-CLONIC SEIZURE
     Dosage: ()
     Route: 065
  3. LEVETIRACETAM. [Suspect]
     Active Substance: LEVETIRACETAM
     Indication: CEREBROVASCULAR ACCIDENT
  4. L-ARGININE [Concomitant]
     Active Substance: ARGININE
     Indication: EPILEPSY
     Dosage: UNK ()
     Route: 065
  5. L-ARGININE [Concomitant]
     Active Substance: ARGININE
     Indication: CEREBROVASCULAR ACCIDENT

REACTIONS (2)
  - Generalised tonic-clonic seizure [Unknown]
  - Psychotic disorder [Recovering/Resolving]
